FAERS Safety Report 15557444 (Version 10)
Quarter: 2020Q2

REPORT INFORMATION
  Report Type: Report from Study
  Country: US (occurrence: US)
  Receive Date: 20181026
  Receipt Date: 20200611
  Transmission Date: 20200713
  Serious: No
  Sender: FDA-Public Use
  Company Number: PHEH2018US044983

PATIENT
  Sex: Female

DRUGS (3)
  1. GILENYA [Suspect]
     Active Substance: FINGOLIMOD HYDROCHLORIDE
     Dosage: 0.5 MG QD
     Route: 048
     Dates: start: 20130402
  2. GILENYA [Suspect]
     Active Substance: FINGOLIMOD HYDROCHLORIDE
     Indication: MULTIPLE SCLEROSIS
     Dosage: 0.5 MG, QD
     Route: 048
     Dates: start: 20130402
  3. GILENYA [Suspect]
     Active Substance: FINGOLIMOD HYDROCHLORIDE
     Dosage: 0.5 MG, QD
     Route: 048

REACTIONS (14)
  - Emotional distress [Unknown]
  - Hypoaesthesia [Unknown]
  - Back pain [Unknown]
  - Visual impairment [Unknown]
  - Pain in extremity [Unknown]
  - Temperature intolerance [Unknown]
  - Urinary incontinence [Unknown]
  - Bladder disorder [Unknown]
  - Influenza like illness [Unknown]
  - Cognitive disorder [Unknown]
  - Memory impairment [Unknown]
  - Abdominal discomfort [Unknown]
  - Nausea [Unknown]
  - Conjunctivitis [Unknown]
